FAERS Safety Report 19498618 (Version 2)
Quarter: 2021Q3

REPORT INFORMATION
  Report Type: Report from Study
  Country: AR (occurrence: AR)
  Receive Date: 20210706
  Receipt Date: 20210913
  Transmission Date: 20211014
  Serious: Yes (Death, Hospitalization, Other)
  Sender: FDA-Public Use
  Company Number: NVSC2021AR150397

PATIENT
  Age: 53 Year
  Sex: Female

DRUGS (1)
  1. COSENTYX [Suspect]
     Active Substance: SECUKINUMAB
     Indication: PSORIATIC ARTHROPATHY
     Dosage: 300 MG, QMO
     Route: 058
     Dates: start: 20201130, end: 20210714

REACTIONS (4)
  - Pyrexia [Fatal]
  - COVID-19 [Fatal]
  - Dyspnoea [Fatal]
  - Pneumonia [Fatal]

NARRATIVE: CASE EVENT DATE: 20210624
